FAERS Safety Report 18288169 (Version 1)
Quarter: 2020Q3

REPORT INFORMATION
  Report Type: Spontaneous
  Country: JP (occurrence: JP)
  Receive Date: 20200921
  Receipt Date: 20200921
  Transmission Date: 20201103
  Serious: Yes (Hospitalization, Other)
  Sender: FDA-Public Use
  Company Number: JP-LEADINGPHARMA-JP-2020LEALIT00140

PATIENT
  Age: 69 Year
  Sex: Female

DRUGS (4)
  1. FUROSEMIDE TABLETS USP [Suspect]
     Active Substance: FUROSEMIDE
     Indication: OEDEMA PERIPHERAL
  2. VITAMIN B [Interacting]
     Active Substance: VITAMIN B
     Indication: PRODUCT USED FOR UNKNOWN INDICATION
     Route: 042
  3. FUROSEMIDE TABLETS USP [Suspect]
     Active Substance: FUROSEMIDE
     Indication: CHEST DISCOMFORT
     Route: 048
  4. VITAMIN B [Interacting]
     Active Substance: VITAMIN B
     Route: 048

REACTIONS (7)
  - Treatment failure [Unknown]
  - Pulmonary congestion [Recovered/Resolved]
  - Areflexia [Recovered/Resolved]
  - Jugular vein distension [Recovered/Resolved]
  - Cardiomegaly [Recovered/Resolved]
  - Myocardial fibrosis [Recovered/Resolved]
  - Vitamin B1 deficiency [Unknown]
